FAERS Safety Report 5927313-6 (Version None)
Quarter: 2008Q4

REPORT INFORMATION
  Report Type: 
  Country: None (occurrence: None)
  Receive Date: 20081017
  Receipt Date: 20081008
  Transmission Date: 20090506
  Serious: Yes (Hospitalization)
  Sender: FDA-Public Use
  Company Number: 220001M08ITA

PATIENT
  Age: 15 Year
  Sex: Male

DRUGS (1)
  1. SAIZEN [Suspect]
     Indication: BODY HEIGHT ABNORMAL
     Dosage: 1.6 MG, 1 IN 1 DAYS,  SUBCUTANEOUS
     Route: 058

REACTIONS (2)
  - ADENOMATOUS POLYPOSIS COLI [None]
  - RECTAL HAEMORRHAGE [None]
